FAERS Safety Report 6158290-3 (Version None)
Quarter: 2009Q2

REPORT INFORMATION
  Report Type: 
  Country: None (occurrence: None)
  Receive Date: 20090417
  Receipt Date: 20090403
  Transmission Date: 20091009
  Serious: Yes (Life-Threatening)
  Sender: FDA-Public Use
  Company Number: DK-CELGENEUS-044-20484-09041305

PATIENT
  Sex: Female

DRUGS (4)
  1. INNOHEP [Suspect]
     Route: 051
     Dates: start: 20030624, end: 20040603
  2. INNOHEP [Suspect]
  3. MAREVAN [Concomitant]
     Route: 065
     Dates: start: 19940101
  4. MAREVAN [Concomitant]

REACTIONS (1)
  - PREMATURE SEPARATION OF PLACENTA [None]
